FAERS Safety Report 20682636 (Version 1)
Quarter: 2022Q2

REPORT INFORMATION
  Report Type: Spontaneous
  Country: CN (occurrence: CN)
  Receive Date: 20220407
  Receipt Date: 20220407
  Transmission Date: 20220721
  Serious: Yes (Hospitalization, Other)
  Sender: FDA-Public Use
  Company Number: CN-SA-SAC20220405001879

PATIENT
  Age: 64 Year
  Sex: Male
  Weight: 90 kg

DRUGS (1)
  1. HYDROCHLOROTHIAZIDE\IRBESARTAN [Suspect]
     Active Substance: HYDROCHLOROTHIAZIDE\IRBESARTAN
     Indication: Hypertension
     Dosage: 2 DF, QD
     Route: 048
     Dates: start: 20220303, end: 20220318

REACTIONS (3)
  - Blood creatinine increased [Recovering/Resolving]
  - Blood urea increased [Recovering/Resolving]
  - Renal failure [Recovering/Resolving]

NARRATIVE: CASE EVENT DATE: 20220318
